FAERS Safety Report 15596047 (Version 2)
Quarter: 2018Q4

REPORT INFORMATION
  Report Type: Report from Study
  Country: None (occurrence: US)
  Receive Date: 20181107
  Receipt Date: 20181210
  Transmission Date: 20190205
  Serious: Yes (Other)
  Sender: FDA-Public Use
  Company Number: US-ABBVIE-18K-163-2485143-00

PATIENT
  Age: 49 Year
  Sex: Female

DRUGS (1)
  1. HUMIRA [Suspect]
     Active Substance: ADALIMUMAB
     Indication: PSORIATIC ARTHROPATHY
     Route: 058
     Dates: start: 20180830, end: 20181122

REACTIONS (22)
  - Angle closure glaucoma [Unknown]
  - Depression [Unknown]
  - Arthralgia [Unknown]
  - Psoriatic arthropathy [Unknown]
  - Dysstasia [Unknown]
  - Joint stiffness [Unknown]
  - Back pain [Not Recovered/Not Resolved]
  - Loss of personal independence in daily activities [Unknown]
  - Pain [Unknown]
  - Vision blurred [Unknown]
  - Arthralgia [Unknown]
  - Animal bite [Unknown]
  - Nasopharyngitis [Unknown]
  - Joint swelling [Unknown]
  - Paranasal sinus hypersecretion [Unknown]
  - Endodontic procedure [Unknown]
  - Gait disturbance [Unknown]
  - Joint stiffness [Unknown]
  - Dyspnoea [Unknown]
  - Pain [Recovered/Resolved]
  - Cough [Unknown]
  - Drug effect decreased [Unknown]

NARRATIVE: CASE EVENT DATE: 2018
